FAERS Safety Report 5330492-5 (Version None)
Quarter: 2007Q2

REPORT INFORMATION
  Report Type: 
  Country: None (occurrence: None)
  Receive Date: 20070521
  Receipt Date: 20070509
  Transmission Date: 20071010
  Serious: Yes (Other)
  Sender: FDA-Public Use
  Company Number: US-PFIZER INC-2007038686

PATIENT
  Sex: Female
  Weight: 65.909 kg

DRUGS (5)
  1. DILANTIN [Suspect]
     Indication: CONVULSION
     Route: 048
  2. DILANTIN [Suspect]
     Dosage: TEXT:75MG DAILY EVERY DAY TDD:75
     Route: 048
  3. PROGESTERONE [Concomitant]
     Indication: EPILEPSY
     Dates: start: 20061001
  4. ALL OTHER THERAPEUTIC PRODUCTS [Concomitant]
  5. LORAZEPAM [Concomitant]
     Route: 048

REACTIONS (2)
  - ANTICONVULSANT DRUG LEVEL BELOW THERAPEUTIC [None]
  - CONVULSION [None]
